FAERS Safety Report 16014514 (Version 1)
Quarter: 2019Q1

REPORT INFORMATION
  Report Type: Spontaneous
  Country: JP (occurrence: JP)
  Receive Date: 20190227
  Receipt Date: 20190227
  Transmission Date: 20190418
  Serious: Yes (Hospitalization)
  Sender: FDA-Public Use
  Company Number: JP-INCYTE CORPORATION-2019IN001563

PATIENT

DRUGS (4)
  1. JAKAVI [Suspect]
     Active Substance: RUXOLITINIB
     Dosage: 5 MG, UNK
     Route: 048
  2. ALFACALCIDOL [Concomitant]
     Active Substance: ALFACALCIDOL
     Indication: HYPOCALCAEMIA
     Dosage: 6 UG, UNK
     Route: 048
  3. JAKAVI [Suspect]
     Active Substance: RUXOLITINIB
     Indication: POLYCYTHAEMIA VERA
     Dosage: 20 MG, UNK
     Route: 048
  4. ALFACALCIDOL [Concomitant]
     Active Substance: ALFACALCIDOL
     Indication: ADJUSTED CALCIUM
     Dosage: 3-4 UG/DAILY, UNK
     Route: 048

REACTIONS (5)
  - Hypocalcaemia [Recovering/Resolving]
  - Hypoaesthesia [Recovering/Resolving]
  - Electrocardiogram QT prolonged [Unknown]
  - Tetany [Recovering/Resolving]
  - Malaise [Recovering/Resolving]
